FAERS Safety Report 12225491 (Version 2)
Quarter: 2016Q2

REPORT INFORMATION
  Report Type: Report from Study
  Country: RU (occurrence: RU)
  Receive Date: 20160331
  Receipt Date: 20160411
  Transmission Date: 20160815
  Serious: Yes (Life-Threatening, Hospitalization)
  Sender: FDA-Public Use
  Company Number: RU-BAYER-2016-028128

PATIENT
  Sex: Female

DRUGS (13)
  1. BISOPROLOL [Concomitant]
     Active Substance: BISOPROLOL
     Dosage: 5 MG, QD
     Dates: start: 20151221
  2. DEXAMETHASONE. [Concomitant]
     Active Substance: DEXAMETHASONE
     Dosage: 4.0ML, DAILY
     Dates: start: 20160201, end: 20160208
  3. PANCREATIN [Concomitant]
     Active Substance: PANCRELIPASE
     Dosage: 150MG, THREE TIMES PER DAY
     Dates: start: 20160129, end: 20160201
  4. MEBEVERINE [Concomitant]
     Active Substance: MEBEVERINE
     Dosage: 200MG, TWICE PER DAY
     Dates: start: 20160129, end: 20160201
  5. ALGELDRATE W/MAGNESIUM HYDROXIDE [Concomitant]
     Dosage: 10ML, THREE TIMES PER DAY
     Dates: start: 20160129, end: 20160201
  6. SORAFENIB [Suspect]
     Active Substance: SORAFENIB
     Indication: THYROID CANCER
     Dosage: 400 MG, BID
     Dates: start: 20160126, end: 20160201
  7. BETAHISTINE [Concomitant]
     Active Substance: BETAHISTINE
     Dosage: 24 MG, BID
     Dates: start: 20151217
  8. CHLOROPYRAMINE [Concomitant]
     Active Substance: CHLOROPYRAMINE
     Dosage: 2.0ML, TWICE PER DAY
     Dates: start: 20160201, end: 20160208
  9. SORAFENIB [Suspect]
     Active Substance: SORAFENIB
     Indication: THYROID CANCER
     Dosage: 200 MG, DAILY
     Dates: start: 20160217, end: 20160218
  10. VALSARTAN. [Concomitant]
     Active Substance: VALSARTAN
     Dosage: 80 MG, QD
     Dates: start: 20151221
  11. AMLODIPINE [Concomitant]
     Active Substance: AMLODIPINE BESYLATE
     Dosage: 5 MG, QD
     Dates: start: 20151221
  12. DROTAVERINE [Concomitant]
     Active Substance: DROTAVERINE
     Dosage: 40MG, TWICE PER DAY
     Dates: start: 20160129, end: 20160201
  13. MEBICAR [Concomitant]
     Dosage: 300 MG, BID
     Dates: start: 20151217

REACTIONS (3)
  - Erythema [Recovered/Resolved]
  - Angioedema [Recovered/Resolved]
  - Urticaria [Recovered/Resolved]

NARRATIVE: CASE EVENT DATE: 20160201
